FAERS Safety Report 8818973 (Version 1)
Quarter: 2012Q4

REPORT INFORMATION
  Report Type: 
  Country: TW (occurrence: TW)
  Receive Date: 20121001
  Receipt Date: 20121001
  Transmission Date: 20130627
  Serious: Yes (Hospitalization)
  Sender: FDA-Public Use
  Company Number: PHHY2012TW080908

PATIENT
  Age: 50 Year
  Sex: Female
  Weight: 50 kg

DRUGS (5)
  1. AMN107 [Suspect]
     Indication: CHRONIC MYELOID LEUKAEMIA
     Dosage: 800 mg/day
     Route: 048
     Dates: start: 20111015, end: 20120712
  2. DASATINIB [Concomitant]
     Dosage: 100 mg
     Dates: start: 20120713, end: 20120714
  3. TRAMADOL [Concomitant]
     Indication: ABDOMINAL PAIN
     Dosage: 100 mg
     Dates: start: 20120715, end: 20120720
  4. CEFMETAZOLE [Concomitant]
     Indication: PANCREATITIS ACUTE
     Dosage: 2 g, Q8H
     Route: 042
     Dates: start: 20120716, end: 20120722
  5. ESOMEPRAZOLE [Concomitant]
     Indication: PANCREATITIS ACUTE
     Dosage: 40 mg, QD
     Route: 042
     Dates: start: 20120716, end: 20120718

REACTIONS (2)
  - Pancreatitis acute [Recovered/Resolved]
  - Abdominal pain [Recovered/Resolved]
